FAERS Safety Report 5401044-3 (Version None)
Quarter: 2007Q3

REPORT INFORMATION
  Report Type: 
  Country: None (occurrence: None)
  Receive Date: 20070726
  Receipt Date: 20070717
  Transmission Date: 20080115
  Serious: Yes (Hospitalization)
  Sender: FDA-Public Use
  Company Number: 2007AL002815

PATIENT
  Age: 65 Year
  Sex: Female

DRUGS (6)
  1. CITALOPRAM HYDROBROMIDE [Suspect]
     Indication: DEPRESSION
  2. FENTANYL [Concomitant]
  3. RABEPRAZOLE SODIUM [Concomitant]
  4. TOLTERODINE TARTRATE [Concomitant]
  5. HYDROCODONE BITARTRATE [Concomitant]
  6. OVER-THE-COUNTER NON-STEROIDAL ANTI-INFLAMMATORY MEDICATION [Concomitant]

REACTIONS (6)
  - BACK PAIN [None]
  - DRUG INTERACTION [None]
  - PLATELET COUNT INCREASED [None]
  - RETROPERITONEAL HAEMORRHAGE [None]
  - SEROTONIN SYNDROME [None]
  - WHITE BLOOD CELL COUNT INCREASED [None]
